FAERS Safety Report 7635801-X (Version None)
Quarter: 2011Q3

REPORT INFORMATION
  Report Type: 
  Country: None (occurrence: None)
  Receive Date: 20110726
  Receipt Date: 20110718
  Transmission Date: 20111222
  Serious: Yes (Other)
  Sender: FDA-Public Use
  Company Number: US-BAYER-2011-026247

PATIENT
  Age: 33 Year
  Sex: Female
  Weight: 58 kg

DRUGS (2)
  1. YASMIN [Suspect]
     Dosage: UNK
     Dates: start: 20070101
  2. YASMIN [Suspect]
     Dosage: UNK
     Dates: start: 20021001, end: 20030601

REACTIONS (8)
  - CHEST PAIN [None]
  - EMOTIONAL DISTRESS [None]
  - MENTAL DISORDER [None]
  - INJURY [None]
  - DYSPNOEA [None]
  - PULMONARY EMBOLISM [None]
  - HYPOAESTHESIA [None]
  - MUSCLE SPASMS [None]
